FAERS Safety Report 25478874 (Version 1)
Quarter: 2025Q2

REPORT INFORMATION
  Report Type: Spontaneous
  Country: US (occurrence: None)
  Receive Date: 20250624
  Receipt Date: 20250624
  Transmission Date: 20250716
  Serious: No
  Sender: FDA-CTU
  Company Number: None

PATIENT
  Age: 34 Year
  Sex: Male
  Weight: 119.25 kg

DRUGS (1)
  1. ZEPBOUND [Suspect]
     Active Substance: TIRZEPATIDE

REACTIONS (1)
  - Vitreous floaters [None]

NARRATIVE: CASE EVENT DATE: 20250501
